FAERS Safety Report 9025006 (Version 2)
Quarter: 2013Q1

REPORT INFORMATION
  Report Type: Spontaneous
  Country: BE (occurrence: None)
  Receive Date: 20130104
  Receipt Date: 20130128
  Transmission Date: 20140127
  Serious: Yes (Hospitalization)
  Sender: FDA-Public Use
  Company Number: 2012-1595

PATIENT
  Age: 81 Year
  Sex: Male
  Weight: 64.9 kg

DRUGS (2)
  1. CARFILZOMIB (CARFILZOMIB) (20 MILLIGRAM(S)/SQ.METER, INJECTION FOR INFUSION) (CARFILZOMIB) [Suspect]
     Indication: PLASMA CELL MYELOMA
     Dosage: 9.8571 MG (34.5 MG, DAYS 1, 2), INTRAVENOUS
     Route: 042
     Dates: start: 20120926, end: 20120927
  2. DEXAMETHASONE (DEXAMETHASONE) [Concomitant]

REACTIONS (2)
  - Upper limb fracture [None]
  - Osteolysis [None]
